FAERS Safety Report 16801250 (Version 2)
Quarter: 2019Q3

REPORT INFORMATION
  Report Type: Spontaneous
  Country: MA (occurrence: MA)
  Receive Date: 20190912
  Receipt Date: 20190913
  Transmission Date: 20191005
  Serious: Yes (Other)
  Sender: FDA-Public Use
  Company Number: MA-TAKEDA-2019TUS051522

PATIENT
  Age: 68 Year
  Sex: Female

DRUGS (5)
  1. BORTEZOMIB. [Suspect]
     Active Substance: BORTEZOMIB
     Indication: PLASMA CELL MYELOMA
     Dosage: 1.3 MILLIGRAM/SQ. METER
     Route: 065
  2. VALACYCLOVIR [Concomitant]
     Active Substance: VALACYCLOVIR HYDROCHLORIDE
     Indication: PROPHYLAXIS
     Dosage: 500 MILLIGRAM, QD
     Route: 048
  3. ZOLEDRONIC ACID [Concomitant]
     Active Substance: ZOLEDRONIC ACID
     Dosage: 4 MILLIGRAM, MONTHLY
  4. THALIDOMIDE [Concomitant]
     Active Substance: THALIDOMIDE
     Dosage: 100 MILLIGRAM, QD
  5. DEXAMETHASONE. [Concomitant]
     Active Substance: DEXAMETHASONE
     Dosage: 40 MILLIGRAM
     Route: 048

REACTIONS (2)
  - Chalazion [Unknown]
  - Pneumonia [Unknown]
